FAERS Safety Report 5171720-9 (Version None)
Quarter: 2006Q4

REPORT INFORMATION
  Report Type: 
  Country: None (occurrence: None)
  Receive Date: 20061213
  Receipt Date: 20061129
  Transmission Date: 20070319
  Serious: Yes (Hospitalization)
  Sender: FDA-Public Use
  Company Number: US-ELI_LILLY_AND_COMPANY-US200612000066

PATIENT
  Age: 17 Year
  Sex: Female

DRUGS (3)
  1. CYMBALTA [Suspect]
     Indication: DEPRESSION
     Dosage: 30 MG, DAILY (1/D)
  2. CYMBALTA [Suspect]
     Dosage: 30 MG, QOD
  3. INFLIXIMAB [Concomitant]
     Indication: CROHN'S DISEASE

REACTIONS (10)
  - ABDOMINAL PAIN UPPER [None]
  - ABNORMAL BEHAVIOUR [None]
  - ANXIETY [None]
  - CRYING [None]
  - EMOTIONAL DISORDER [None]
  - HEADACHE [None]
  - MOOD ALTERED [None]
  - NAUSEA [None]
  - SLEEP DISORDER [None]
  - SURGERY [None]
